APPROVED DRUG PRODUCT: SACUBITRIL AND VALSARTAN
Active Ingredient: SACUBITRIL; VALSARTAN
Strength: 49MG;51MG
Dosage Form/Route: TABLET;ORAL
Application: A213680 | Product #002 | TE Code: AB
Applicant: BIOCON PHARMA LTD
Approved: Aug 30, 2024 | RLD: No | RS: No | Type: RX